FAERS Safety Report 7129786-2 (Version None)
Quarter: 2010Q4

REPORT INFORMATION
  Report Type: 
  Country: None (occurrence: None)
  Receive Date: 20101130
  Receipt Date: 20101122
  Transmission Date: 20110411
  Serious: Yes (Other)
  Sender: FDA-Public Use
  Company Number: CA-ABBOTT-10P-028-0625813-00

PATIENT
  Sex: Male
  Weight: 97.7 kg

DRUGS (2)
  1. MAVIK [Suspect]
     Indication: ESSENTIAL HYPERTENSION
     Dosage: DAILY DOSE: 1MG
     Dates: start: 20091110
  2. INSULIN [Concomitant]
     Indication: PRODUCT USED FOR UNKNOWN INDICATION

REACTIONS (2)
  - ARTERIOSCLEROSIS [None]
  - CORONARY ARTERY DISEASE [None]
